FAERS Safety Report 10004168 (Version 3)
Quarter: 2014Q1

REPORT INFORMATION
  Report Type: Spontaneous
  Country: JP (occurrence: JP)
  Receive Date: 20140312
  Receipt Date: 20140320
  Transmission Date: 20141002
  Serious: No
  Sender: FDA-Public Use
  Company Number: JP-BRISTOL-MYERS SQUIBB COMPANY-20031290

PATIENT
  Age: 52 Year
  Sex: Female

DRUGS (3)
  1. ERBITUX SOLN FOR INF 5MG/ML [Suspect]
     Indication: SQUAMOUS CELL CARCINOMA OF HEAD AND NECK
     Dosage: 400MG:05SEP13?250MG/M2:12SEP-31OCT13:49DAYS?19SEP13,250MG/M2?250MG/M2:12NOV13-24DEC13
     Route: 041
     Dates: start: 20130905
  2. CISPLATIN FOR INJ [Suspect]
     Indication: SQUAMOUS CELL CARCINOMA OF HEAD AND NECK
     Dosage: 75MG/M2:05SEP13?26SEP13?17OCT13
     Route: 041
     Dates: start: 20130905
  3. DOCETAXEL [Suspect]
     Indication: SQUAMOUS CELL CARCINOMA OF HEAD AND NECK
     Dosage: 75MG/M2:05SEP13?26SEP13?17OCT13
     Route: 041
     Dates: start: 20130905

REACTIONS (17)
  - Dysgeusia [Unknown]
  - Dry mouth [Unknown]
  - Dysphagia [Unknown]
  - Peripheral sensory neuropathy [Unknown]
  - Alopecia [Unknown]
  - Constipation [Unknown]
  - Oedema [Unknown]
  - Hypersensitivity [Unknown]
  - Stomatitis [Unknown]
  - Diarrhoea [Unknown]
  - Decreased appetite [Unknown]
  - Skin fissures [Unknown]
  - Nausea [Unknown]
  - Dermatitis acneiform [Unknown]
  - Skin reaction [Unknown]
  - Vomiting [Unknown]
  - Radiation skin injury [Unknown]
